FAERS Safety Report 8204652-X (Version None)
Quarter: 2012Q1

REPORT INFORMATION
  Report Type: 
  Country: None (occurrence: None)
  Receive Date: 20120313
  Receipt Date: 20120311
  Transmission Date: 20120608
  Serious: Yes (Other)
  Sender: FDA-Public Use
  Company Number: IL-JNJFOC-20120302453

PATIENT
  Age: 76 Year
  Sex: Male

DRUGS (25)
  1. RITUXIMAB [Suspect]
     Route: 065
  2. RITUXIMAB [Suspect]
     Route: 065
  3. CYCLOPHOSPHAMIDE [Suspect]
     Route: 065
  4. CYCLOPHOSPHAMIDE [Suspect]
     Route: 065
  5. PREDNISONE [Suspect]
     Indication: DIFFUSE LARGE B-CELL LYMPHOMA
     Route: 065
  6. PREDNISONE [Suspect]
     Route: 065
  7. DOXORUBICIN HCL [Suspect]
     Route: 042
  8. RITUXIMAB [Suspect]
     Route: 065
  9. VINCRISTINE [Suspect]
     Indication: DIFFUSE LARGE B-CELL LYMPHOMA
     Route: 065
  10. PREDNISONE [Suspect]
     Route: 065
  11. DOXORUBICIN HCL [Suspect]
     Indication: DIFFUSE LARGE B-CELL LYMPHOMA
     Route: 042
  12. DOXORUBICIN HCL [Suspect]
     Route: 042
  13. RITUXIMAB [Suspect]
     Route: 065
  14. VINCRISTINE [Suspect]
     Route: 065
  15. DOXORUBICIN HCL [Suspect]
     Route: 042
  16. VINCRISTINE [Suspect]
     Route: 065
  17. VINCRISTINE [Suspect]
     Route: 065
  18. PREDNISONE [Suspect]
     Route: 065
  19. CYCLOPHOSPHAMIDE [Suspect]
     Indication: DIFFUSE LARGE B-CELL LYMPHOMA
     Route: 065
  20. CYCLOPHOSPHAMIDE [Suspect]
     Route: 065
  21. PREDNISONE [Suspect]
     Route: 065
  22. CYCLOPHOSPHAMIDE [Suspect]
     Route: 065
  23. VINCRISTINE [Suspect]
     Route: 065
  24. DOXORUBICIN HCL [Suspect]
     Route: 042
  25. RITUXIMAB [Suspect]
     Indication: DIFFUSE LARGE B-CELL LYMPHOMA
     Route: 065

REACTIONS (1)
  - PNEUMOCYSTIS JIROVECI PNEUMONIA [None]
